FAERS Safety Report 16791030 (Version 3)
Quarter: 2019Q4

REPORT INFORMATION
  Report Type: Report from Study
  Country: CO (occurrence: CO)
  Receive Date: 20190910
  Receipt Date: 20191113
  Transmission Date: 20200122
  Serious: Yes (Other)
  Sender: FDA-Public Use
  Company Number: CO-REGENERON PHARMACEUTICALS, INC.-2019-51725

PATIENT

DRUGS (4)
  1. EYLEA [Suspect]
     Active Substance: AFLIBERCEPT
     Indication: AGE-RELATED MACULAR DEGENERATION
     Dosage: 2 MG MONTHLY FOR 3 MONTHS AND THEN EVERY 2 MONTHS
     Route: 031
     Dates: start: 20160615
  2. EYLEA [Suspect]
     Active Substance: AFLIBERCEPT
     Dosage: LEFT EYE, LAST APPLICATION OF EYLIA BEFORE EVENT
     Route: 031
     Dates: start: 20190515, end: 20190515
  3. SIMBRINZA [Concomitant]
     Active Substance: BRIMONIDINE TARTRATE\BRINZOLAMIDE
     Indication: OCULAR HYPERTENSION
     Dosage: UNK
  4. EYLEA [Suspect]
     Active Substance: AFLIBERCEPT
     Dosage: RIGHT EYE 2 INJECTIONS, LAST ON 15-MAY-2019
     Route: 031
     Dates: end: 20190515

REACTIONS (7)
  - Syncope [Recovered/Resolved]
  - Hypotension [Unknown]
  - Eye disorder [Unknown]
  - Eye haemorrhage [Unknown]
  - Inappropriate schedule of product administration [Unknown]
  - Abdominal pain upper [Not Recovered/Not Resolved]
  - Ocular hypertension [Unknown]

NARRATIVE: CASE EVENT DATE: 20190520
